FAERS Safety Report 7282777-3 (Version None)
Quarter: 2011Q1

REPORT INFORMATION
  Report Type: 
  Country: None (occurrence: None)
  Receive Date: 20110209
  Receipt Date: 20110128
  Transmission Date: 20110831
  Serious: Yes (Hospitalization, Other)
  Sender: FDA-Public Use
  Company Number: GB-BAYER-2010-006169

PATIENT
  Sex: Female
  Weight: 97.8 kg

DRUGS (32)
  1. LOPERAMIDE [Concomitant]
     Dosage: 4 MG, QD (START DATE: PRE-STUDY)
     Route: 048
     Dates: start: 20101204, end: 20110121
  2. NOVORAPID [Concomitant]
     Dosage: DAILY DOSE 15 U
     Route: 058
     Dates: start: 20110127
  3. OXYCODONE HCL [Concomitant]
     Indication: PAIN
     Dosage: DAILY DOSE 30 MG
     Route: 058
     Dates: start: 20110121
  4. LIOTHYRONINE SODIUM [Concomitant]
     Indication: HYPOTHYROIDISM
     Dosage: DAILY DOSE 60 ?G
     Route: 048
     Dates: start: 20110125
  5. LOPERAMIDE [Concomitant]
     Indication: DIARRHOEA
     Dosage: 4 MG, UNK
     Route: 048
     Dates: start: 20100612, end: 20100712
  6. MIRTAZAPINE [Concomitant]
     Indication: DEPRESSION
     Dosage: 15 MG, QD (START DATE: PRE-STUDY)
     Route: 048
     Dates: end: 20110121
  7. DICLOFENAC SODIUM [Concomitant]
     Indication: ANALGESIC THERAPY
     Dosage: START DATE: PRE-STUDY
     Route: 048
     Dates: end: 20110121
  8. CYCLIZINE [Concomitant]
     Indication: NAUSEA
     Dosage: DAILY DOSE 150 MG
     Route: 058
     Dates: start: 20110122, end: 20110123
  9. SORAFENIB (RAF KINASE INHIBITOR) [Suspect]
     Dosage: 200 MG, BID
     Route: 048
     Dates: start: 20110119, end: 20110120
  10. LOPERAMIDE [Concomitant]
     Dosage: 4 MG, UNK
     Route: 048
     Dates: start: 20101028, end: 20101029
  11. BETAHISTINE [Concomitant]
     Indication: VERTIGO
     Dosage: DAILY DOSE 48 MG
     Route: 048
     Dates: end: 20110121
  12. TPN ELECTROLYTES IN PLASTIC CONTAINER [Concomitant]
     Indication: MEDICAL DIET
     Dosage: DAILY DOSE 3 L
     Route: 042
     Dates: start: 20110126
  13. LEVOMEPROMAZINE [Concomitant]
     Indication: NAUSEA
     Dosage: DAILY DOSE 12.5 MG
     Route: 058
     Dates: start: 20110121, end: 20110126
  14. LEVEMIR [Concomitant]
     Indication: TYPE 1 DIABETES MELLITUS
     Dosage: DAILY DOSE 30 U
     Route: 058
     Dates: start: 20110127
  15. METFORMIN HCL [Concomitant]
     Indication: DIABETES MELLITUS
     Dosage: START DATE: PRE-STUDY
     Route: 048
     Dates: end: 20110121
  16. OXYCODONE HCL [Concomitant]
     Indication: ANALGESIC THERAPY
     Dosage: 320 MG, UNK
     Route: 048
     Dates: end: 20110121
  17. FEBRINEX [Concomitant]
     Indication: VITAMIN SUPPLEMENTATION
     Dosage: DAILY DOSE 30 U
     Route: 042
     Dates: start: 20110126
  18. METOCLOPRAMIDE [Concomitant]
     Indication: NAUSEA
     Dosage: 60 MG, QD (START DATE: PRE-STUDY)
     Route: 048
     Dates: end: 20110121
  19. ASPIRIN [Concomitant]
     Indication: ANALGESIC THERAPY
     Dosage: DAILY DOSE 75 MG
     Route: 048
     Dates: end: 20110121
  20. OMEPRAZOLE [Concomitant]
     Indication: ABDOMINAL DISCOMFORT
     Dosage: DAILY DOSE 80 MG
     Route: 042
     Dates: start: 20110122
  21. SORAFENIB (RAF KINASE INHIBITOR) [Suspect]
     Indication: THYROID CANCER
     Dosage: 400 MG, BID
     Route: 048
     Dates: start: 20101124, end: 20101212
  22. ATORVASTATIN [Concomitant]
     Indication: HYPERCHOLESTEROLAEMIA
     Dosage: 80 MG, QD (START DATE: PRE-STUDY)
     Route: 048
     Dates: end: 20110121
  23. DIFFLAM MOUTH [Concomitant]
     Indication: PRODUCT USED FOR UNKNOWN INDICATION
     Dosage: DAILY DOSE 40 ML
     Dates: start: 20110122
  24. LEVOROXIN [Concomitant]
     Indication: HYPOTHYROIDISM
     Dosage: 200 MCG/24HR, QD (START DATE: PRE-STUDY)
  25. LANSOPRAZOLE [Concomitant]
     Indication: ABDOMINAL DISCOMFORT
     Dosage: 30 MG, QD (START DATE: PRE-STUDY)
     Route: 048
     Dates: end: 20110121
  26. SORAFENIB (RAF KINASE INHIBITOR) [Suspect]
     Dosage: 200 MG, BID
     Route: 048
     Dates: start: 20101230, end: 20110118
  27. NOVORAPID [Concomitant]
     Indication: TYPE 1 DIABETES MELLITUS
     Dosage: 100 IU, QD (START DATE: PRE-STUDY)
     Route: 058
     Dates: end: 20110121
  28. ENALAPRIL MALEATE [Concomitant]
     Indication: HYPERTENSION
     Dosage: 40 MG, QD (START DATE: PRE-STUDY)
     Route: 048
     Dates: end: 20110121
  29. AMITRIPTYLINE HCL [Concomitant]
     Indication: DEPRESSION
     Dosage: 20 MG, QD (START DATE: PRE-STUDY)
     Route: 048
  30. AMITRIPTYLINE HCL [Concomitant]
     Dosage: DAILY DOSE 10 MG
     Route: 048
     Dates: start: 20110125
  31. OXYCODONE HCL [Concomitant]
     Dosage: DAILY DOSE 160 MG
     Route: 058
     Dates: start: 20110121
  32. DALTEPARIN SODIUM [Concomitant]
     Indication: PROPHYLAXIS
     Dosage: DAILY DOSE 5000 U
     Route: 042
     Dates: start: 20110122

REACTIONS (2)
  - ACUTE ABDOMEN [None]
  - COLITIS [None]
